FAERS Safety Report 14658695 (Version 8)
Quarter: 2018Q4

REPORT INFORMATION
  Report Type: Spontaneous
  Country: US (occurrence: US)
  Receive Date: 20180320
  Receipt Date: 20181018
  Transmission Date: 20190204
  Serious: No
  Sender: FDA-Public Use
  Company Number: US-PFIZER INC-2018110403

PATIENT
  Age: 6 Year
  Sex: Male
  Weight: 18.18 kg

DRUGS (1)
  1. GENOTROPIN [Suspect]
     Active Substance: SOMATROPIN
     Indication: GROWTH HORMONE DEFICIENCY
     Dosage: 0.8 MG, 6 DAYS A WEEK AND ONE DAY FREE
     Route: 058
     Dates: start: 201610

REACTIONS (5)
  - Heart rate increased [Unknown]
  - Product administered at inappropriate site [Unknown]
  - Product prescribing error [Unknown]
  - Injection site bruising [Unknown]
  - Palpitations [Unknown]
